FAERS Safety Report 9012041 (Version 1)
Quarter: 2012Q4

REPORT INFORMATION
  Report Type: Spontaneous
  Country: ES (occurrence: None)
  Receive Date: 20121228
  Receipt Date: 20121228
  Transmission Date: 20130627
  Serious: Yes (Other)
  Sender: FDA-Public Use
  Company Number: 2012S1001750

PATIENT
  Age: 45 Year
  Sex: Male

DRUGS (2)
  1. LIVAZO [Suspect]
     Indication: HYPERLIPIDAEMIA
     Route: 048
     Dates: start: 20120817, end: 20120907
  2. SECALIP SUPRA [Concomitant]

REACTIONS (1)
  - Stevens-Johnson syndrome [None]
